FAERS Safety Report 6378661-X (Version None)
Quarter: 2009Q3

REPORT INFORMATION
  Report Type: 
  Country: None (occurrence: None)
  Receive Date: 20090928
  Receipt Date: 20090915
  Transmission Date: 20100115
  Serious: Yes (Hospitalization)
  Sender: FDA-Public Use
  Company Number: US-ROCHE-639407

PATIENT
  Sex: Female
  Weight: 76.2 kg

DRUGS (13)
  1. PEG-INTERFERON ALFA 2A (RO 25-8310) [Suspect]
     Dosage: LAST DOSE: 05 JUNE 2009 DRUG TEMPORARILY INTERRUPTED: 10 JUNE 2009
     Route: 058
     Dates: start: 20090501, end: 20090610
  2. PEG-INTERFERON ALFA 2A (RO 25-8310) [Suspect]
     Route: 058
     Dates: start: 20090710
  3. RIBAVIRIN [Suspect]
     Dosage: LAST DOSE: 10 JUNE 2009 FREQUENCY: QD
     Route: 048
     Dates: start: 20090501, end: 20090610
  4. RIBAVIRIN [Suspect]
     Route: 048
     Dates: start: 20090710
  5. ASPIRIN [Concomitant]
  6. ATENOLOL [Concomitant]
  7. HUMULIN 70/30 [Concomitant]
     Dosage: TDD REPORTED AS 70/30
  8. IBUPROFEN [Concomitant]
  9. IMITREX [Concomitant]
     Dosage: TDD: PRN
  10. JANUVIA [Concomitant]
  11. LAMOTRIGINE [Concomitant]
  12. LISINOPRIL [Concomitant]
  13. PREVACID [Concomitant]

REACTIONS (1)
  - DIABETIC KETOACIDOSIS [None]
